FAERS Safety Report 20392901 (Version 2)
Quarter: 2022Q3

REPORT INFORMATION
  Report Type: Report from Study
  Country: DE (occurrence: DE)
  Receive Date: 20220128
  Receipt Date: 20220912
  Transmission Date: 20221026
  Serious: Yes (Hospitalization, Other)
  Sender: FDA-Public Use
  Company Number: DE-TAKEDA-2022TUS004212

PATIENT
  Age: 41 Year
  Sex: Female

DRUGS (9)
  1. TEDUGLUTIDE [Suspect]
     Active Substance: TEDUGLUTIDE
     Indication: Short-bowel syndrome
     Dosage: 05 MILLIGRAM, QD
     Route: 042
     Dates: start: 20150410
  2. TEDUGLUTIDE [Suspect]
     Active Substance: TEDUGLUTIDE
     Indication: Short-bowel syndrome
     Dosage: 05 MILLIGRAM, QD
     Route: 042
     Dates: start: 20150410
  3. TEDUGLUTIDE [Suspect]
     Active Substance: TEDUGLUTIDE
     Indication: Short-bowel syndrome
     Dosage: 05 MILLIGRAM, QD
     Route: 042
     Dates: start: 20150410
  4. TEDUGLUTIDE [Suspect]
     Active Substance: TEDUGLUTIDE
     Indication: Short-bowel syndrome
     Dosage: 05 MILLIGRAM, QD
     Route: 042
     Dates: start: 20150410
  5. IMDEVIMAB [Concomitant]
     Active Substance: IMDEVIMAB
     Indication: COVID-19
     Dosage: 999 UNK
     Route: 065
     Dates: start: 20211210, end: 202112
  6. RIFAXIMIN [Concomitant]
     Active Substance: RIFAXIMIN
     Indication: Diarrhoea
     Dosage: 400 MILLIGRAM, BID
     Route: 048
     Dates: start: 201902
  7. OPIUM [Concomitant]
     Active Substance: OPIUM
     Indication: Gastroenteritis radiation
     Dosage: 100 MILLIGRAM, Q6HR
     Route: 048
     Dates: start: 201511, end: 201701
  8. OPIUM [Concomitant]
     Active Substance: OPIUM
     Dosage: 200 MILLIGRAM, Q6HR
     Route: 048
     Dates: start: 201701
  9. COTRIM [Concomitant]
     Active Substance: SULFAMETHOXAZOLE\TRIMETHOPRIM
     Indication: Urinary tract infection
     Dosage: 999 UNK
     Route: 065
     Dates: start: 202208, end: 20220826

REACTIONS (6)
  - Ileus [Recovered/Resolved]
  - Sepsis [Recovered/Resolved]
  - Acute kidney injury [Recovered/Resolved]
  - Deep vein thrombosis [Not Recovered/Not Resolved]
  - Catheter site inflammation [Recovered/Resolved]
  - COVID-19 [Recovered/Resolved]

NARRATIVE: CASE EVENT DATE: 20210804
